FAERS Safety Report 11157987 (Version 1)
Quarter: 2015Q2

REPORT INFORMATION
  Report Type: Spontaneous
  Country: FR (occurrence: FR)
  Receive Date: 20150603
  Receipt Date: 20150603
  Transmission Date: 20150821
  Serious: Yes (Hospitalization)
  Sender: FDA-Public Use
  Company Number: FR-ROCHE-1586741

PATIENT
  Age: 57 Year
  Sex: Female

DRUGS (15)
  1. DUROGESIC [Concomitant]
     Active Substance: FENTANYL
     Dosage: APPLICATION EVERY 72 HOURS (PERSONAL TREATMENT CONTINUED DURING HOSPITALIZATION)
     Route: 062
  2. FOLINIC ACID [Suspect]
     Active Substance: LEUCOVORIN
     Indication: COLON CANCER
     Route: 042
     Dates: start: 20150423, end: 20150423
  3. FOLINIC ACID [Suspect]
     Active Substance: LEUCOVORIN
     Indication: METASTASES TO LIVER
  4. PANTOPRAZOLE [Concomitant]
     Active Substance: PANTOPRAZOLE SODIUM
     Route: 048
  5. AVASTIN [Suspect]
     Active Substance: BEVACIZUMAB
     Indication: METASTASES TO LIVER
  6. STILNOX [Concomitant]
     Active Substance: ZOLPIDEM TARTRATE
     Indication: INSOMNIA
     Dosage: 10 MG (MAXIMUM DOSE/INTAKE), 1 TABLET (MAXIMUM/DAY)
     Route: 048
  7. OXALIPLATIN. [Suspect]
     Active Substance: OXALIPLATIN
     Indication: METASTASES TO LIVER
  8. PRIMPERAN [Concomitant]
     Active Substance: METOCLOPRAMIDE HYDROCHLORIDE
     Dosage: 10 MG/ 2 ML SOLUTION FOR INJECTION: 1 AMPOULE IN THE MORNING, MIDDAY, AND EVENING, 30 MINUTES BEFORE
     Route: 042
  9. FLUOROURACILE [Suspect]
     Active Substance: FLUOROURACIL
     Indication: COLON CANCER
     Route: 042
     Dates: start: 20150423, end: 20150423
  10. FLUOROURACILE [Suspect]
     Active Substance: FLUOROURACIL
     Indication: METASTASES TO LIVER
  11. OXALIPLATIN. [Suspect]
     Active Substance: OXALIPLATIN
     Indication: COLON CANCER
     Route: 042
     Dates: start: 20150423, end: 20150423
  12. SOLUPRED (FRANCE) [Concomitant]
     Active Substance: PREDNISOLONE
     Dosage: IN THE MORNING.
     Route: 048
  13. ALPRAZOLAM. [Concomitant]
     Active Substance: ALPRAZOLAM
     Indication: ANXIETY
     Dosage: 1 TABLET IN THE MORNING AND IN THE EVENING.
     Route: 048
  14. ZOPHREN [Concomitant]
     Active Substance: ONDANSETRON
     Indication: NAUSEA
     Dosage: IF NECESSARY WITH A MAXIMAL DOSE/INTAKE OF 1 ORAL LYOPHILIZED FORM - 3 MAXIMAL LYOPHILIZED FORM/DAY
     Route: 048
  15. AVASTIN [Suspect]
     Active Substance: BEVACIZUMAB
     Indication: COLON CANCER
     Route: 042
     Dates: start: 20150423, end: 20150423

REACTIONS (1)
  - Histiocytosis haematophagic [Recovered/Resolved]

NARRATIVE: CASE EVENT DATE: 20150423
